FAERS Safety Report 12480174 (Version 1)
Quarter: 2016Q2

REPORT INFORMATION
  Report Type: Spontaneous
  Country: US (occurrence: US)
  Receive Date: 20160620
  Receipt Date: 20160620
  Transmission Date: 20160815
  Serious: No
  Sender: FDA-Public Use
  Company Number: US-JNJFOC-20160502523

PATIENT
  Sex: Male

DRUGS (1)
  1. LEVAQUIN [Suspect]
     Active Substance: LEVOFLOXACIN
     Indication: PRODUCT USED FOR UNKNOWN INDICATION
     Route: 065

REACTIONS (8)
  - Muscle strain [Unknown]
  - Pain [Unknown]
  - Feeling abnormal [Unknown]
  - Joint injury [Unknown]
  - Fracture [Unknown]
  - General physical health deterioration [Unknown]
  - Drug intolerance [Unknown]
  - Adverse event [Not Recovered/Not Resolved]
